FAERS Safety Report 24326828 (Version 2)
Quarter: 2024Q3

REPORT INFORMATION
  Report Type: Spontaneous
  Country: US (occurrence: US)
  Receive Date: 20240917
  Receipt Date: 20240926
  Transmission Date: 20241017
  Serious: No
  Sender: ABBVIE
  Company Number: US-ABBVIE-5925114

PATIENT
  Age: 68 Year
  Sex: Male

DRUGS (5)
  1. VENCLEXTA [Suspect]
     Active Substance: VENETOCLAX
     Indication: Product used for unknown indication
     Dosage: DAYS  1- 28
     Route: 048
     Dates: start: 20230310
  2. VENCLEXTA [Suspect]
     Active Substance: VENETOCLAX
     Indication: Product used for unknown indication
     Dosage: DAY 1-14 DAYS 28
     Route: 048
     Dates: end: 20240728
  3. AZACITIDINE [Concomitant]
     Active Substance: AZACITIDINE
     Indication: Product used for unknown indication
     Dates: start: 20230310, end: 20240806
  4. MAPLIRPACEPT [Concomitant]
     Active Substance: MAPLIRPACEPT
     Indication: Acute myeloid leukaemia
     Route: 042
     Dates: start: 20240819, end: 20240819
  5. MAPLIRPACEPT [Concomitant]
     Active Substance: MAPLIRPACEPT
     Indication: Acute myeloid leukaemia
     Route: 042
     Dates: start: 20230310

REACTIONS (1)
  - Neutrophil count decreased [Recovered/Resolved]

NARRATIVE: CASE EVENT DATE: 20240826
